FAERS Safety Report 4861339-9 (Version None)
Quarter: 2005Q4

REPORT INFORMATION
  Report Type: 
  Country: None (occurrence: None)
  Receive Date: 20051129
  Receipt Date: 20050113
  Transmission Date: 20060501
  Serious: Yes (Disabling)
  Sender: FDA-Public Use
  Company Number: WAES 0501USA01741

PATIENT
  Age: 50 Year
  Sex: Female

DRUGS (6)
  1. FOSAMAX [Suspect]
     Indication: OSTEOPOROSIS
     Dosage: 70 MG WKY PO
     Route: 048
     Dates: start: 20041223, end: 20050105
  2. ADVAIR DISKUS 250/50 [Concomitant]
  3. ALLEGRA [Concomitant]
  4. FIORINAL [Concomitant]
  5. ALBUTEROL [Concomitant]
  6. THYROID TAB [Concomitant]

REACTIONS (4)
  - BACK PAIN [None]
  - BONE PAIN [None]
  - DIARRHOEA [None]
  - NECK PAIN [None]
